FAERS Safety Report 17218920 (Version 1)
Quarter: 2019Q4

REPORT INFORMATION
  Report Type: Report from Study
  Country: PK (occurrence: PK)
  Receive Date: 20191231
  Receipt Date: 20191231
  Transmission Date: 20200122
  Serious: Yes (Death, Other)
  Sender: FDA-Public Use
  Company Number: NVSC2019PK082539

PATIENT
  Age: 15 Year
  Sex: Male
  Weight: 52 kg

DRUGS (1)
  1. GLIVEC [Suspect]
     Active Substance: IMATINIB MESYLATE
     Indication: CHRONIC MYELOID LEUKAEMIA
     Dosage: 400 MG, QD
     Route: 048
     Dates: start: 20171220

REACTIONS (6)
  - Urinary incontinence [Unknown]
  - Death [Fatal]
  - Loss of consciousness [Unknown]
  - Visual impairment [Unknown]
  - Intracranial pressure increased [Unknown]
  - Respiratory disorder [Unknown]

NARRATIVE: CASE EVENT DATE: 20191031
